FAERS Safety Report 21456495 (Version 1)
Quarter: 2022Q4

REPORT INFORMATION
  Report Type: Spontaneous
  Country: CZ (occurrence: CZ)
  Receive Date: 20221014
  Receipt Date: 20221014
  Transmission Date: 20230113
  Serious: Yes (Hospitalization, Other)
  Sender: FDA-Public Use
  Company Number: None

PATIENT
  Age: 17 Year
  Sex: Female

DRUGS (5)
  1. ACETAMINOPHEN [Suspect]
     Active Substance: ACETAMINOPHEN
     Dosage: 11000 MG
     Dates: start: 20200918
  2. IBUPROFEN [Suspect]
     Active Substance: IBUPROFEN
     Dosage: 8X400 MG
     Dates: start: 20200918
  3. IBUPROFEN [Suspect]
     Active Substance: IBUPROFEN
     Dosage: 8X400 MG
     Dates: start: 20200918
  4. PENICILLIN V POTASSIUM [Suspect]
     Active Substance: PENICILLIN V POTASSIUM
     Dosage: 5X1000 MG
     Dates: start: 20200918
  5. FEXOFENADINE HYDROCHLORIDE [Suspect]
     Active Substance: FEXOFENADINE HYDROCHLORIDE
     Dosage: 360 MG (2X180 MG)
     Dates: start: 20200918

REACTIONS (3)
  - Vomiting [Unknown]
  - Intentional overdose [Unknown]
  - Suicide attempt [Unknown]

NARRATIVE: CASE EVENT DATE: 20200918
